FAERS Safety Report 23676070 (Version 1)
Quarter: 2024Q1

REPORT INFORMATION
  Report Type: Spontaneous
  Country: US (occurrence: None)
  Receive Date: 20240327
  Receipt Date: 20240327
  Transmission Date: 20240410
  Serious: Yes (Hospitalization)
  Sender: FDA-Public Use
  Company Number: US-ROCHE-3529308

PATIENT
  Age: 70 Year
  Sex: Female

DRUGS (3)
  1. CELLCEPT [Suspect]
     Active Substance: MYCOPHENOLATE MOFETIL
     Indication: Product used for unknown indication
     Route: 065
  2. OFEV [Suspect]
     Active Substance: NINTEDANIB
     Indication: Idiopathic pulmonary fibrosis
     Route: 048
     Dates: start: 20220726, end: 202211
  3. ONDANSETRON [Suspect]
     Active Substance: ONDANSETRON
     Indication: Product used for unknown indication
     Route: 065

REACTIONS (27)
  - Atrial fibrillation [Unknown]
  - Nausea [Unknown]
  - Vomiting [Unknown]
  - Diarrhoea [Unknown]
  - Colitis [Unknown]
  - Decreased appetite [Unknown]
  - Dyschezia [Unknown]
  - Musculoskeletal chest pain [Unknown]
  - Hepatic steatosis [Unknown]
  - Constipation [Recovered/Resolved]
  - Fatigue [Unknown]
  - Dysphonia [Unknown]
  - Taste disorder [Unknown]
  - Hypertension [Unknown]
  - Feeling abnormal [Unknown]
  - Hepatic pain [Unknown]
  - Pruritus [Unknown]
  - Headache [Unknown]
  - Impaired gastric emptying [Unknown]
  - Dizziness [Unknown]
  - Dyspepsia [Unknown]
  - COVID-19 [Unknown]
  - Blood glucose increased [Unknown]
  - Arthralgia [Unknown]
  - Pollakiuria [Unknown]
  - Pancreatic cyst [Unknown]
  - Diarrhoea [Unknown]
